FAERS Safety Report 8117879-2 (Version None)
Quarter: 2012Q1

REPORT INFORMATION
  Report Type: 
  Country: None (occurrence: None)
  Receive Date: 20120202
  Receipt Date: 20120124
  Transmission Date: 20120608
  Serious: Yes (Death)
  Sender: FDA-Public Use
  Company Number: 2012NUEUSA00070

PATIENT
  Age: 36 Year
  Sex: Female
  Weight: 54.4 kg

DRUGS (3)
  1. SEROQUEL [Concomitant]
  2. NUEDEXTA [Suspect]
     Indication: AFFECT LABILITY
     Dosage: ORAL
     Route: 048
  3. LIBRIUM /00011501/ (CHOLORDIAZEPOXIDE) [Concomitant]

REACTIONS (1)
  - DRUG INTERACTION [None]
